FAERS Safety Report 6613205-6 (Version None)
Quarter: 2010Q1

REPORT INFORMATION
  Report Type: 
  Country: None (occurrence: None)
  Receive Date: 20100225
  Receipt Date: 20100216
  Transmission Date: 20100710
  Serious: No
  Sender: FDA-Public Use
  Company Number: SPI201000058

PATIENT
  Sex: Female

DRUGS (1)
  1. AMITIZA [Suspect]
     Dosage: 24 MCG, BID

REACTIONS (1)
  - DYSPNOEA [None]
